FAERS Safety Report 14848066 (Version 1)
Quarter: 2018Q2

REPORT INFORMATION
  Report Type: Spontaneous
  Country: US (occurrence: US)
  Receive Date: 20180504
  Receipt Date: 20180504
  Transmission Date: 20180711
  Serious: No
  Sender: FDA-Public Use
  Company Number: US-ASTRAZENECA-2018SE59563

PATIENT
  Age: 29636 Day
  Sex: Female
  Weight: 62.4 kg

DRUGS (1)
  1. IMFINZI [Suspect]
     Active Substance: DURVALUMAB
     Indication: BLADDER CANCER
     Route: 042
     Dates: start: 20180202, end: 20180413

REACTIONS (3)
  - Circumstance or information capable of leading to medication error [Unknown]
  - Malaise [Unknown]
  - Dry throat [Unknown]

NARRATIVE: CASE EVENT DATE: 20180417
